FAERS Safety Report 15310724 (Version 1)
Quarter: 2018Q3

REPORT INFORMATION
  Report Type: Spontaneous
  Country: US (occurrence: US)
  Receive Date: 20180813
  Receipt Date: 20180813
  Transmission Date: 20181010
  Serious: Yes (Other)
  Sender: FDA-Public Use
  Company Number: None

PATIENT
  Age: 67 Year
  Sex: Female
  Weight: 66.15 kg

DRUGS (17)
  1. AUBAGIO [Concomitant]
     Active Substance: TERIFLUNOMIDE
  2. GABAPENTIN. [Concomitant]
     Active Substance: GABAPENTIN
  3. VITAMIN B [Concomitant]
     Active Substance: VITAMIN B
  4. CRANBERRY. [Concomitant]
     Active Substance: CRANBERRY
  5. PROBIOTICS [Concomitant]
     Active Substance: PROBIOTICS NOS
  6. MULTI VITAMIN [Concomitant]
     Active Substance: VITAMINS
  7. TRAZODONE [Concomitant]
     Active Substance: TRAZODONE HYDROCHLORIDE
  8. CINNAMON. [Concomitant]
     Active Substance: CINNAMON
  9. AMITIZA [Suspect]
     Active Substance: LUBIPROSTONE
     Indication: DIARRHOEA
     Dates: start: 20180726, end: 20180806
  10. GINGER. [Concomitant]
     Active Substance: GINGER
  11. VITAMIN D [Concomitant]
     Active Substance: CHOLECALCIFEROL
  12. AMITIZA [Suspect]
     Active Substance: LUBIPROSTONE
     Indication: CONSTIPATION
     Dates: start: 20180726, end: 20180806
  13. VYTORIN [Concomitant]
     Active Substance: EZETIMIBE\SIMVASTATIN
  14. ALOE VERA [Concomitant]
     Active Substance: ALOE VERA LEAF
  15. CYMBALTA [Concomitant]
     Active Substance: DULOXETINE HYDROCHLORIDE
  16. PEPPERMINT. [Concomitant]
     Active Substance: PEPPERMINT
  17. VITAMIN C [Concomitant]
     Active Substance: ASCORBIC ACID

REACTIONS (6)
  - Pain in extremity [None]
  - Loss of consciousness [None]
  - Nausea [None]
  - Diarrhoea [None]
  - Fall [None]
  - Limb injury [None]

NARRATIVE: CASE EVENT DATE: 20180806
